FAERS Safety Report 9755185 (Version 1)
Quarter: 2013Q4

REPORT INFORMATION
  Report Type: Spontaneous
  Country: US (occurrence: US)
  Receive Date: 20131213
  Receipt Date: 20131213
  Transmission Date: 20140711
  Serious: No
  Sender: FDA-Public Use
  Company Number: US-GLAXOSMITHKLINE-A1013585A

PATIENT
  Age: 41 Year
  Sex: Female

DRUGS (7)
  1. WALGREENS NICOTINE TRANSDERMAL SYSTEM PATCH CLEAR, 14MG [Suspect]
     Indication: EX-TOBACCO USER
     Dates: start: 201302
  2. NICODERM CQ 21MG [Suspect]
     Indication: EX-TOBACCO USER
  3. ALPRAZOLAM [Concomitant]
  4. KLONOPIN [Concomitant]
  5. CITALOPRAM [Concomitant]
  6. ADVAIR [Concomitant]
  7. XOPENEX [Concomitant]

REACTIONS (3)
  - Dyspnoea [Not Recovered/Not Resolved]
  - Drug administration error [Unknown]
  - Adverse event [Unknown]
